FAERS Safety Report 24680846 (Version 1)
Quarter: 2024Q4

REPORT INFORMATION
  Report Type: Spontaneous
  Country: US (occurrence: US)
  Receive Date: 20241129
  Receipt Date: 20241129
  Transmission Date: 20250115
  Serious: No
  Sender: SANOFI AVENTIS
  Company Number: US-SA-2024SA344442

PATIENT
  Age: 26 Year
  Sex: Female

DRUGS (1)
  1. TZIELD [Suspect]
     Active Substance: TEPLIZUMAB-MZWV
     Dosage: 1833 UG, Q2H
     Route: 065
     Dates: start: 20241111, end: 20241116

REACTIONS (4)
  - Periorbital oedema [Unknown]
  - Nausea [Unknown]
  - Urticaria [Unknown]
  - Inappropriate schedule of product administration [Unknown]

NARRATIVE: CASE EVENT DATE: 20241111
